FAERS Safety Report 13588398 (Version 3)
Quarter: 2017Q4

REPORT INFORMATION
  Report Type: Report from Study
  Country: IT (occurrence: IT)
  Receive Date: 20170529
  Receipt Date: 20171013
  Transmission Date: 20180320
  Serious: Yes (Other)
  Sender: FDA-Public Use
  Company Number: IT-GLAXOSMITHKLINE-IT2017073094

PATIENT
  Age: 37 Year
  Sex: Female
  Weight: 57 kg

DRUGS (3)
  1. RITUXIMAB. [Suspect]
     Active Substance: RITUXIMAB
     Indication: SJOGREN^S SYNDROME
     Dosage: 1000 MG, SINGLE
     Route: 042
     Dates: start: 20170426, end: 20170426
  2. RITUXIMAB. [Suspect]
     Active Substance: RITUXIMAB
     Dosage: 1000 MG, SINGLE
     Route: 042
     Dates: start: 20170510, end: 20170510
  3. PLACEBO [Suspect]
     Active Substance: UNSPECIFIED INGREDIENT
     Indication: SJOGREN^S SYNDROME
     Dosage: 200 MG, WE
     Route: 058
     Dates: start: 20170302

REACTIONS (2)
  - Neutropenia [Recovered/Resolved]
  - Rash [Recovered/Resolved]

NARRATIVE: CASE EVENT DATE: 20170512
